FAERS Safety Report 13772158 (Version 2)
Quarter: 2019Q4

REPORT INFORMATION
  Report Type: Spontaneous
  Country: PL (occurrence: PL)
  Receive Date: 20170720
  Receipt Date: 20191104
  Transmission Date: 20200122
  Serious: Yes (Death, Other)
  Sender: FDA-Public Use
  Company Number: PL-JNJFOC-20170708406

PATIENT

DRUGS (2)
  1. IBRUTINIB [Suspect]
     Active Substance: IBRUTINIB
     Indication: CHRONIC LYMPHOCYTIC LEUKAEMIA
     Route: 048
  2. IBRUTINIB [Suspect]
     Active Substance: IBRUTINIB
     Indication: LYMPHOCYTIC LYMPHOMA

REACTIONS (21)
  - Cardiac failure [Fatal]
  - Bladder cancer [Fatal]
  - Epistaxis [Unknown]
  - Pneumonia [Fatal]
  - Chronic obstructive pulmonary disease [Fatal]
  - Neutropenia [Unknown]
  - Diarrhoea [Unknown]
  - Herpes zoster [Unknown]
  - Atrial fibrillation [Unknown]
  - Haematochezia [Unknown]
  - Haemorrhagic diathesis [Unknown]
  - Ischaemic stroke [Fatal]
  - Infection [Fatal]
  - Upper respiratory tract infection [Fatal]
  - Basal cell carcinoma [Unknown]
  - Rash [Unknown]
  - Completed suicide [Fatal]
  - Upper gastrointestinal haemorrhage [Fatal]
  - Vomiting [Unknown]
  - Petechiae [Unknown]
  - Hyphaema [Unknown]
